FAERS Safety Report 23856210 (Version 1)
Quarter: 2024Q2

REPORT INFORMATION
  Report Type: Spontaneous
  Country: US (occurrence: US)
  Receive Date: 20240515
  Receipt Date: 20240515
  Transmission Date: 20240716
  Serious: No
  Sender: FDA-Public Use
  Company Number: US-TARSUS PHARMACEUTICALS-TSP-US-2024-000055

PATIENT
  Sex: Female

DRUGS (2)
  1. XDEMVY [Suspect]
     Active Substance: LOTILANER
     Indication: Demodex blepharitis
     Dosage: UNK
     Route: 065
     Dates: start: 20240206, end: 20240210
  2. XDEMVY [Suspect]
     Active Substance: LOTILANER
     Dosage: UNK
     Route: 065
     Dates: start: 20240219, end: 20240401

REACTIONS (2)
  - Hordeolum [Unknown]
  - Chalazion [Recovering/Resolving]

NARRATIVE: CASE EVENT DATE: 20240101
